FAERS Safety Report 7431010-8 (Version None)
Quarter: 2011Q2

REPORT INFORMATION
  Report Type: 
  Country: None (occurrence: None)
  Receive Date: 20110421
  Receipt Date: 20110407
  Transmission Date: 20111010
  Serious: Yes (Hospitalization)
  Sender: FDA-Public Use
  Company Number: SE-CELGENEUS-150-20785-11040730

PATIENT
  Sex: Female

DRUGS (6)
  1. CYKLOFOSFAMID ORION [Suspect]
     Indication: MULTIPLE MYELOMA
     Route: 065
     Dates: start: 20110104, end: 20110104
  2. DEXAMETHASONE [Suspect]
     Indication: MULTIPLE MYELOMA
     Route: 048
     Dates: start: 20110104, end: 20110105
  3. PAMIDRONAT TEVA [Concomitant]
     Route: 065
  4. THALIDOMIDE [Suspect]
     Indication: MULTIPLE MYELOMA
     Dosage: 100 MILLIGRAM
     Route: 048
     Dates: start: 20110107
  5. TROMBYL [Suspect]
     Route: 065
  6. LAKTULOS APELSIN MEDA [Concomitant]
     Route: 065

REACTIONS (2)
  - EYE HAEMORRHAGE [None]
  - VISUAL IMPAIRMENT [None]
